FAERS Safety Report 8145118-5 (Version None)
Quarter: 2012Q1

REPORT INFORMATION
  Report Type: 
  Country: None (occurrence: None)
  Receive Date: 20120217
  Receipt Date: 20120214
  Transmission Date: 20120608
  Serious: Yes (Other)
  Sender: FDA-Public Use
  Company Number: PHHY2012BE012046

PATIENT
  Sex: Male

DRUGS (6)
  1. LIPITOR [Concomitant]
  2. ASPIRIN [Concomitant]
  3. BISOPROLOL FUMARATE [Concomitant]
  4. PERINDOPRIL ERBUMINE [Concomitant]
  5. SIMVASTATIN [Concomitant]
  6. ZOLEDRONIC ACID (RECLAST) [Suspect]
     Indication: OSTEOPOROSIS
     Dosage: 5 MG, UNK
     Route: 042
     Dates: start: 20100913

REACTIONS (2)
  - MYOCARDIAL INFARCTION [None]
  - INJECTION SITE HAEMATOMA [None]
